FAERS Safety Report 7351043-X (Version None)
Quarter: 2011Q1

REPORT INFORMATION
  Report Type: 
  Country: None (occurrence: None)
  Receive Date: 20110314
  Receipt Date: 20110304
  Transmission Date: 20110831
  Serious: Yes (Hospitalization)
  Sender: FDA-Public Use
  Company Number: US-ASTRAZENECA-2011SE12160

PATIENT
  Age: 69 Year
  Sex: Female
  Weight: 83 kg

DRUGS (24)
  1. VENTOLIN [Concomitant]
     Dosage: PRN
  2. AMITRIPTYLINE HCL [Concomitant]
  3. CLONAZEPAM [Concomitant]
  4. TEKTURNA [Concomitant]
  5. NORCO [Concomitant]
  6. RHINOCORT [Concomitant]
  7. ENABLEX [Concomitant]
  8. VITAMIN E [Concomitant]
  9. REMERON GENERIC [Concomitant]
  10. SYMBICORT [Suspect]
     Indication: ASTHMA
     Route: 055
  11. SEROQUEL [Suspect]
     Indication: PANIC ATTACK
     Route: 048
  12. QUINAPRIL HCL [Concomitant]
  13. NEXIUM [Suspect]
     Indication: ABDOMINAL DISCOMFORT
     Route: 048
  14. SEROQUEL [Suspect]
     Indication: BIPOLAR DISORDER
     Route: 048
  15. BETACAROTENE [Concomitant]
  16. SINGULAIR [Concomitant]
     Dosage: DAILY
  17. SOMA [Concomitant]
  18. CLONIDINE [Concomitant]
  19. LYRICA [Concomitant]
  20. SECTRAL [Concomitant]
  21. C-1000 PLUS BIOFLAVONOIDS [Concomitant]
  22. LUTEIN VISION [Concomitant]
  23. LODRANE [Concomitant]
     Dosage: DAILY
  24. DILTIAZEM [Concomitant]

REACTIONS (2)
  - PNEUMONIA [None]
  - WEIGHT DECREASED [None]
